FAERS Safety Report 22237785 (Version 2)
Quarter: 2023Q2

REPORT INFORMATION
  Report Type: Report from Study
  Country: US (occurrence: US)
  Receive Date: 20230421
  Receipt Date: 20230428
  Transmission Date: 20230722
  Serious: Yes (Other)
  Sender: FDA-Public Use
  Company Number: US-ABBVIE-4298447

PATIENT
  Sex: Female
  Weight: 99.79 kg

DRUGS (25)
  1. HUMIRA [Suspect]
     Active Substance: ADALIMUMAB
     Indication: Rheumatoid arthritis
     Dosage: STRENGTH: 40 MILLIGRAM?CITRATE FREE
     Route: 058
     Dates: start: 20100114
  2. HUMIRA [Suspect]
     Active Substance: ADALIMUMAB
  3. SERTRALINE [Concomitant]
     Active Substance: SERTRALINE HYDROCHLORIDE
     Indication: Product used for unknown indication
     Route: 048
  4. OXYBUTYNIN [Concomitant]
     Active Substance: OXYBUTYNIN
     Indication: Product used for unknown indication
     Dosage: FREQUENCY TEXT: 1 IN AM+1 IN PM
  5. GABAPENTIN [Concomitant]
     Active Substance: GABAPENTIN
     Indication: Product used for unknown indication
  6. Duloxetine HCL CPEP [Concomitant]
     Indication: Depression
     Route: 048
  7. Finasteride with minoxidil [Concomitant]
     Indication: Product used for unknown indication
     Route: 048
  8. PROLIA [Concomitant]
     Active Substance: DENOSUMAB
     Indication: Product used for unknown indication
     Route: 058
  9. ATENOLOL [Concomitant]
     Active Substance: ATENOLOL
     Indication: Product used for unknown indication
     Route: 048
  10. BUPROPION [Concomitant]
     Active Substance: BUPROPION
     Indication: Product used for unknown indication
  11. FUROSEMIDE [Concomitant]
     Active Substance: FUROSEMIDE
     Indication: Product used for unknown indication
     Dosage: FREQUENCY TEXT: 2 IN AM  1 IN PM
     Route: 048
  12. KRILL OIL [Concomitant]
     Active Substance: DIETARY SUPPLEMENT\KRILL OIL
     Indication: Product used for unknown indication
     Route: 048
  13. ALPRAZOLAM [Concomitant]
     Active Substance: ALPRAZOLAM
     Indication: Product used for unknown indication
     Dosage: FREQUENCY TEXT: TAKE 1 AS NEEDED
     Route: 048
  14. DIETARY SUPPLEMENT [Concomitant]
     Active Substance: DIETARY SUPPLEMENT
     Indication: Product used for unknown indication
  15. Tizanidine Tablet [Concomitant]
     Indication: Product used for unknown indication
     Dosage: FREQUENCY TEXT: 1OR 2 AS NEEDED
     Route: 048
  16. MINERALS\VITAMINS [Concomitant]
     Active Substance: MINERALS\VITAMINS
     Indication: Product used for unknown indication
  17. SIMVASTATIN [Concomitant]
     Active Substance: SIMVASTATIN
     Indication: Product used for unknown indication
     Route: 048
  18. MELOXICAM [Concomitant]
     Active Substance: MELOXICAM
     Indication: Product used for unknown indication
     Route: 048
  19. BUSPIRONE [Concomitant]
     Active Substance: BUSPIRONE HYDROCHLORIDE
     Indication: Anxiolytic therapy
     Route: 048
  20. METHOTREXATE [Concomitant]
     Active Substance: METHOTREXATE
     Indication: Product used for unknown indication
     Route: 058
  21. Minoxidil Tablet [Concomitant]
     Indication: Product used for unknown indication
     Route: 048
  22. FOLIC ACID [Concomitant]
     Active Substance: FOLIC ACID
     Indication: Product used for unknown indication
     Route: 048
  23. TRAZODONE [Concomitant]
     Active Substance: TRAZODONE HYDROCHLORIDE
     Indication: Product used for unknown indication
     Dosage: TIME INTERVAL: 0.33333333 DAYS
     Route: 048
  24. Oxycodone HCL Tablet [Concomitant]
     Indication: Product used for unknown indication
     Route: 048
  25. ASPIRIN [Concomitant]
     Active Substance: ASPIRIN
     Indication: Product used for unknown indication
     Route: 048

REACTIONS (35)
  - Fall [Recovering/Resolving]
  - Carpal tunnel syndrome [Unknown]
  - Sleep apnoea syndrome [Unknown]
  - Eye contusion [Recovering/Resolving]
  - Rheumatoid arthritis [Unknown]
  - Head injury [Recovering/Resolving]
  - Joint arthroplasty [Unknown]
  - Knee arthroplasty [Unknown]
  - Osteoarthritis [Unknown]
  - Hysterectomy [Unknown]
  - Shoulder arthroplasty [Unknown]
  - Temporomandibular joint syndrome [Unknown]
  - Tonsillectomy [Unknown]
  - Abdominoplasty [Unknown]
  - Nephrolithiasis [Unknown]
  - Basal cell carcinoma [Unknown]
  - Foot fracture [Unknown]
  - Cholecystectomy [Unknown]
  - Coronary artery disease [Unknown]
  - Ovarian cyst ruptured [Unknown]
  - Osteoporosis [Unknown]
  - Appendicectomy [Unknown]
  - Meniere^s disease [Unknown]
  - Exostosis [Unknown]
  - Knee arthroplasty [Unknown]
  - Foot operation [Unknown]
  - Fracture [Unknown]
  - Blepharoplasty [Unknown]
  - Cataract [Unknown]
  - Fibromyalgia [Unknown]
  - Vaginoplasty [Unknown]
  - Proctoplasty [Unknown]
  - Osteomyelitis [Unknown]
  - Fall [Unknown]
  - Limb injury [Unknown]

NARRATIVE: CASE EVENT DATE: 20150101
